FAERS Safety Report 24971837 (Version 1)
Quarter: 2025Q1

REPORT INFORMATION
  Report Type: Spontaneous
  Country: CN (occurrence: CN)
  Receive Date: 20250214
  Receipt Date: 20250214
  Transmission Date: 20250408
  Serious: No
  Sender: ALEXION PHARMACEUTICALS
  Company Number: CN-AstraZeneca-2019SE68197

PATIENT
  Age: 50 Year
  Weight: 70 kg

DRUGS (2)
  1. ESOMEPRAZOLE MAGNESIUM [Suspect]
     Active Substance: ESOMEPRAZOLE MAGNESIUM
     Indication: Gastritis erosive
     Dosage: 20 MILLIGRAM, QD
  2. ALLANTOIN [Suspect]
     Active Substance: ALLANTOIN
     Indication: Gastritis erosive
     Dosage: 1 DOSAGE FORM, TID

REACTIONS (3)
  - Tinnitus [Recovering/Resolving]
  - Dizziness [Recovering/Resolving]
  - Vision blurred [Recovering/Resolving]
